FAERS Safety Report 5932052-1 (Version None)
Quarter: 2008Q4

REPORT INFORMATION
  Report Type: 
  Country: None (occurrence: None)
  Receive Date: 20081027
  Receipt Date: 20081017
  Transmission Date: 20090506
  Serious: Yes (Hospitalization)
  Sender: FDA-Public Use
  Company Number: IT-PFIZER INC-2008088292

PATIENT
  Sex: Female

DRUGS (4)
  1. CELEBREX [Suspect]
     Indication: ABDOMINAL PAIN UPPER
     Dates: start: 20081008
  2. ACE INHIBITOR NOS [Concomitant]
  3. ANTIHYPERTENSIVES [Concomitant]
  4. NIMESULIDE [Concomitant]

REACTIONS (4)
  - ANAPHYLACTIC SHOCK [None]
  - CARDIAC DISORDER [None]
  - DYSPNOEA [None]
  - PRURITUS [None]
